FAERS Safety Report 4409797-8 (Version None)
Quarter: 2004Q3

REPORT INFORMATION
  Report Type: 
  Country: None (occurrence: None)
  Receive Date: 20040726
  Receipt Date: 20040628
  Transmission Date: 20050211
  Serious: Yes (Hospitalization)
  Sender: FDA-Public Use
  Company Number: A04200400600

PATIENT
  Age: 94 Year
  Sex: Male

DRUGS (3)
  1. ELOXATIN [Suspect]
     Indication: COLON CANCER METASTATIC
     Dosage: 180 MG OTHER; INTRAVENOUS DRIP, A FEW MINS
     Route: 041
     Dates: start: 20040628, end: 20040628
  2. ELOXATIN [Suspect]
     Indication: METASTASES TO LIVER
     Dosage: 180 MG OTHER; INTRAVENOUS DRIP, A FEW MINS
     Route: 041
     Dates: start: 20040628, end: 20040628
  3. KELODA (CAPECITABINE) [Concomitant]

REACTIONS (7)
  - BLOOD PRESSURE INCREASED [None]
  - CHILLS [None]
  - COLON CANCER METASTATIC [None]
  - FREEZING PHENOMENON [None]
  - HYPERSENSITIVITY [None]
  - METASTASES TO LIVER [None]
  - TACHYCARDIA [None]
